FAERS Safety Report 4342391-6 (Version None)
Quarter: 2004Q2

REPORT INFORMATION
  Report Type: 
  Country: None (occurrence: None)
  Receive Date: 20040416
  Receipt Date: 20040406
  Transmission Date: 20050107
  Serious: Yes (Other)
  Sender: FDA-Public Use
  Company Number: 2004019679

PATIENT
  Sex: Male
  Weight: 66 kg

DRUGS (2)
  1. LOPID [Suspect]
     Indication: HYPERTRIGLYCERIDAEMIA
     Dosage: ORAL
     Route: 048
  2. ASCORBIC ACID [Concomitant]

REACTIONS (3)
  - BONE MARROW DEPRESSION [None]
  - LYMPHOCYTE PERCENTAGE INCREASED [None]
  - UNEXPECTED THERAPEUTIC DRUG EFFECT [None]
